FAERS Safety Report 7486003-1 (Version None)
Quarter: 2011Q2

REPORT INFORMATION
  Report Type: 
  Country: None (occurrence: None)
  Receive Date: 20110517
  Receipt Date: 20110329
  Transmission Date: 20111010
  Serious: Yes (Hospitalization, Other)
  Sender: FDA-Public Use
  Company Number: US-BAYER-2011-028416

PATIENT
  Age: 37 Year
  Sex: Female

DRUGS (1)
  1. YAZ [Suspect]
     Indication: ORAL CONTRACEPTION
     Dosage: 1 DF, QD
     Dates: start: 20080801, end: 20090601

REACTIONS (8)
  - COMPLICATED MIGRAINE [None]
  - VISUAL FIELD DEFECT [None]
  - EMBOLIC STROKE [None]
  - BRAIN INJURY [None]
  - VISION BLURRED [None]
  - AMENORRHOEA [None]
  - HYPOAESTHESIA [None]
  - CONFUSIONAL STATE [None]
